FAERS Safety Report 17430014 (Version 1)
Quarter: 2020Q1

REPORT INFORMATION
  Report Type: Spontaneous
  Country: US (occurrence: US)
  Receive Date: 20200218
  Receipt Date: 20200218
  Transmission Date: 20200409
  Serious: No
  Sender: FDA-Public Use
  Company Number: US-PFIZER INC-2020066994

PATIENT
  Age: 49 Year
  Sex: Male
  Weight: 105.3 kg

DRUGS (1)
  1. CAVERJECT [Suspect]
     Active Substance: ALPROSTADIL
     Dosage: UNK ^^BELIEVES IT IS THE BIGGEST DOSE AVAILABLE/THERE ARE 2 NEEDLES IN THE PACKAGE^ ^
     Dates: start: 2019

REACTIONS (3)
  - Drug ineffective [Unknown]
  - Erection increased [Unknown]
  - Weight decreased [Unknown]

NARRATIVE: CASE EVENT DATE: 20200211
